FAERS Safety Report 10688037 (Version 1)
Quarter: 2014Q4

REPORT INFORMATION
  Report Type: Spontaneous
  Country: US (occurrence: None)
  Receive Date: 20141231
  Receipt Date: 20141231
  Transmission Date: 20150529
  Serious: Yes (Other)
  Sender: FDA-Public Use
  Company Number: None

PATIENT
  Age: 57 Year
  Sex: Female
  Weight: 62.14 kg

DRUGS (1)
  1. LORAZEPAM. [Suspect]
     Active Substance: LORAZEPAM
     Indication: ANXIETY
     Dosage: UP TO 3 PILLS AS NEEDED
     Route: 048
     Dates: start: 20141020, end: 20141202

REACTIONS (3)
  - Nervousness [None]
  - Panic attack [None]
  - Product odour abnormal [None]

NARRATIVE: CASE EVENT DATE: 20141124
